FAERS Safety Report 25928490 (Version 1)
Quarter: 2025Q4

REPORT INFORMATION
  Report Type: Spontaneous
  Country: US (occurrence: US)
  Receive Date: 20251016
  Receipt Date: 20251016
  Transmission Date: 20260117
  Serious: No
  Sender: SHIELD THERAPEUTICS
  Company Number: US-SHIELD THERAPEUTICS-US-STX-25-00374

PATIENT
  Age: 74 Year
  Sex: Female

DRUGS (10)
  1. ACCRUFER [Suspect]
     Active Substance: FERRIC MALTOL
     Indication: Blood iron decreased
     Dosage: 30 MILLIGRAM, BID
     Route: 048
     Dates: start: 20250623, end: 20250626
  2. ACCRUFER [Suspect]
     Active Substance: FERRIC MALTOL
     Indication: Restless legs syndrome
  3. OXYMETAZOLINE [Concomitant]
     Active Substance: OXYMETAZOLINE
     Indication: Product used for unknown indication
     Dosage: UNKNOWN
     Route: 065
  4. IVERMECTIN [Concomitant]
     Active Substance: IVERMECTIN
     Indication: Product used for unknown indication
     Dosage: UNKNOWN
     Route: 065
  5. VALACYCLOVIR [Concomitant]
     Active Substance: VALACYCLOVIR HYDROCHLORIDE
     Indication: Product used for unknown indication
     Dosage: UNKNOWN
     Route: 065
  6. ROSUVASTATIN [Concomitant]
     Active Substance: ROSUVASTATIN
     Indication: Product used for unknown indication
     Dosage: UNKNOWN
     Route: 065
  7. UNITHROID [Concomitant]
     Active Substance: LEVOTHYROXINE SODIUM
     Indication: Product used for unknown indication
     Dosage: UNKNOWN
     Route: 065
  8. CALCITONIN [Concomitant]
     Active Substance: CALCITONIN
     Indication: Product used for unknown indication
     Dosage: UNKNOWN
     Route: 065
  9. BACTRIM [Concomitant]
     Active Substance: SULFAMETHOXAZOLE\TRIMETHOPRIM
     Indication: Product used for unknown indication
     Dosage: UNKNOWN
     Route: 065
  10. OMEPRAZOLE [Concomitant]
     Active Substance: OMEPRAZOLE
     Indication: Product used for unknown indication
     Dosage: UNKNOWN
     Route: 065

REACTIONS (2)
  - Eructation [Recovered/Resolved]
  - Abdominal distension [Recovered/Resolved]

NARRATIVE: CASE EVENT DATE: 20250623
